FAERS Safety Report 4444796-1 (Version None)
Quarter: 2004Q3

REPORT INFORMATION
  Report Type: 
  Country: None (occurrence: None)
  Receive Date: 20040907
  Receipt Date: 20040907
  Transmission Date: 20050211
  Serious: Yes (Hospitalization)
  Sender: FDA-Public Use
  Company Number: None

PATIENT
  Age: 22 Year
  Sex: Male
  Weight: 58.9676 kg

DRUGS (1)
  1. PROLIXIN [Suspect]
     Dosage: 1ST TIME USE INJECTION

REACTIONS (3)
  - HYPOAESTHESIA ORAL [None]
  - MOVEMENT DISORDER [None]
  - VISION BLURRED [None]
